FAERS Safety Report 15684522 (Version 3)
Quarter: 2019Q2

REPORT INFORMATION
  Report Type: Spontaneous
  Country: IN (occurrence: IN)
  Receive Date: 20181204
  Receipt Date: 20190528
  Transmission Date: 20190711
  Serious: Yes (Hospitalization, Other)
  Sender: FDA-Public Use
  Company Number: IN-SUN PHARMACEUTICAL INDUSTRIES LTD-2018R1-192550

PATIENT
  Age: 75 Year
  Sex: Female

DRUGS (5)
  1. TRAMADOL. [Suspect]
     Active Substance: TRAMADOL
     Indication: CHEST PAIN
  2. EMSET (ONDANSETRON) [Suspect]
     Active Substance: ONDANSETRON
     Indication: ILL-DEFINED DISORDER
     Dosage: UNK, QD
     Route: 042
  3. TRAMADOL. [Suspect]
     Active Substance: TRAMADOL
     Indication: PROCEDURAL PAIN
     Dosage: 50 MILLIGRAM, QD
     Route: 048
  4. TRAMAZAC (TRAMADOL) [Suspect]
     Active Substance: TRAMADOL
     Indication: ILL-DEFINED DISORDER
     Dosage: UNK, QD (IN 100 ML NS SOLUTION)
     Route: 042
  5. RABICEF [RABEPRAZOLE] [Suspect]
     Active Substance: RABEPRAZOLE
     Indication: ILL-DEFINED DISORDER
     Dosage: UNK, BID
     Route: 042

REACTIONS (3)
  - Tremor [Recovered/Resolved]
  - Head titubation [Recovered/Resolved]
  - Parkinsonism [Recovered/Resolved]
